FAERS Safety Report 9797459 (Version 3)
Quarter: 2014Q2

REPORT INFORMATION
  Report Type: Report from Study
  Country: CN (occurrence: CN)
  Receive Date: 20140106
  Receipt Date: 20140515
  Transmission Date: 20141212
  Serious: Yes (Death)
  Sender: FDA-Public Use
  Company Number: PHHY2013CN152938

PATIENT
  Age: 41 Year
  Sex: Male

DRUGS (1)
  1. EXJADE [Suspect]
     Indication: APLASTIC ANAEMIA
     Dosage: 2375 MG, ONCE DAILY
     Route: 048
     Dates: start: 20130220, end: 20130220

REACTIONS (1)
  - Death [Fatal]
